FAERS Safety Report 16299527 (Version 3)
Quarter: 2020Q4

REPORT INFORMATION
  Report Type: Spontaneous
  Country: US (occurrence: US)
  Receive Date: 20190510
  Receipt Date: 20201230
  Transmission Date: 20210113
  Serious: Yes (Hospitalization, Other)
  Sender: FDA-Public Use
  Company Number: US-ASTRAZENECA-2019SE65188

PATIENT
  Sex: Male

DRUGS (62)
  1. PRILOSEC [Suspect]
     Active Substance: OMEPRAZOLE MAGNESIUM
     Indication: GASTRINOMA
     Dosage: GENERIC
     Route: 065
     Dates: start: 2005, end: 2008
  2. DILAUDID [Concomitant]
     Active Substance: HYDROMORPHONE HYDROCHLORIDE
  3. FISH OIL [Concomitant]
     Active Substance: FISH OIL
  4. HYZAAR [Concomitant]
     Active Substance: HYDROCHLOROTHIAZIDE\LOSARTAN POTASSIUM
  5. BIVALIRUDIN. [Concomitant]
     Active Substance: BIVALIRUDIN
  6. NEXIUM [Suspect]
     Active Substance: ESOMEPRAZOLE MAGNESIUM
     Indication: GASTRINOMA
     Route: 048
     Dates: start: 2001, end: 2008
  7. PREVACID [Suspect]
     Active Substance: LANSOPRAZOLE
     Indication: GASTRINOMA
     Route: 065
     Dates: start: 2010
  8. CLOPIDOGREL [Concomitant]
     Active Substance: CLOPIDOGREL BISULFATE
     Indication: CEREBROVASCULAR ACCIDENT
     Dates: start: 2004
  9. CRESTOR [Concomitant]
     Active Substance: ROSUVASTATIN CALCIUM
  10. MILK OF MAGNESIA [Concomitant]
     Active Substance: MAGNESIUM HYDROXIDE
  11. HEPARIN [Concomitant]
     Active Substance: HEPARIN SODIUM
  12. CEFTRIAXONE. [Concomitant]
     Active Substance: CEFTRIAXONE
  13. HYDROCODONE BITARTRATE AND ACETAMINOPHEN [Concomitant]
     Active Substance: ACETAMINOPHEN\HYDROCODONE BITARTRATE
  14. ZOLPIDEM TARTRATE. [Concomitant]
     Active Substance: ZOLPIDEM TARTRATE
  15. PRILOSEC OTC [Suspect]
     Active Substance: OMEPRAZOLE MAGNESIUM
     Indication: GASTRINOMA
     Route: 048
  16. PREVACID 24 HR [Suspect]
     Active Substance: LANSOPRAZOLE
     Indication: GASTRINOMA
     Route: 065
     Dates: start: 2010, end: 2015
  17. CLOPIDOGREL [Concomitant]
     Active Substance: CLOPIDOGREL BISULFATE
     Indication: THROMBOSIS
     Dates: start: 2004
  18. CLOPIDOGREL [Concomitant]
     Active Substance: CLOPIDOGREL BISULFATE
     Indication: CARDIAC DISORDER
     Dates: start: 2004
  19. COLCRYS [Concomitant]
     Active Substance: COLCHICINE
  20. ASPIRIN. [Concomitant]
     Active Substance: ASPIRIN
  21. ZITHROMAX [Concomitant]
     Active Substance: AZITHROMYCIN DIHYDRATE
  22. IPRATROPIUM [Concomitant]
     Active Substance: IPRATROPIUM
  23. SODIUM CHLORIDE. [Concomitant]
     Active Substance: SODIUM CHLORIDE
  24. PRILOSEC [Suspect]
     Active Substance: OMEPRAZOLE MAGNESIUM
     Indication: GASTRINOMA
     Route: 048
     Dates: start: 20110701
  25. PRILOSEC [Suspect]
     Active Substance: OMEPRAZOLE MAGNESIUM
     Indication: GASTRINOMA
     Route: 048
     Dates: start: 20091224
  26. ISOSORBIDE. [Concomitant]
     Active Substance: ISOSORBIDE
     Indication: CHEST PAIN
     Dates: start: 2004
  27. DOXEPIN [Concomitant]
     Active Substance: DOXEPIN
  28. MORPHINE SULFATE. [Concomitant]
     Active Substance: MORPHINE SULFATE
  29. FENTANYL. [Concomitant]
     Active Substance: FENTANYL
  30. PREVACID IV [Suspect]
     Active Substance: LANSOPRAZOLE
     Route: 065
  31. TAMSULOSIN [Concomitant]
     Active Substance: TAMSULOSIN
     Indication: MICTURITION DISORDER
     Dates: start: 2004
  32. TORSEMIDE. [Concomitant]
     Active Substance: TORSEMIDE
     Indication: FLUID RETENTION
     Dates: start: 2004
  33. MAALOX ANTACID [Concomitant]
     Active Substance: ALUMINUM HYDROXIDE\DIMETHICONE\MAGNESIUM HYDROXIDE
     Dates: start: 1985, end: 1989
  34. VITAMIN E [Concomitant]
     Active Substance: .ALPHA.-TOCOPHEROL
  35. PLAVIX [Concomitant]
     Active Substance: CLOPIDOGREL BISULFATE
  36. PROMETHAZINE [Concomitant]
     Active Substance: PROMETHAZINE HYDROCHLORIDE
  37. ULORIC [Concomitant]
     Active Substance: FEBUXOSTAT
  38. NEXIUM [Suspect]
     Active Substance: ESOMEPRAZOLE MAGNESIUM
     Indication: GASTRINOMA
     Dosage: 40.0MG UNKNOWN
     Route: 048
     Dates: start: 20091224
  39. NEXIUM 24HR [Suspect]
     Active Substance: ESOMEPRAZOLE MAGNESIUM
     Indication: GASTRINOMA
     Route: 048
     Dates: start: 2014, end: 2015
  40. METOPROLOL. [Concomitant]
     Active Substance: METOPROLOL
     Indication: CHEST PAIN
     Dates: start: 2004
  41. METOPROLOL. [Concomitant]
     Active Substance: METOPROLOL
     Indication: HYPERTENSION
     Dates: start: 2004
  42. TAMSULOSIN [Concomitant]
     Active Substance: TAMSULOSIN
     Indication: HYPOTONIA
     Dates: start: 2004
  43. HYDROCODONE [Concomitant]
     Active Substance: HYDROCODONE
  44. NITROGLYCERIN. [Concomitant]
     Active Substance: NITROGLYCERIN
  45. METHYLPREDNISOLONE. [Concomitant]
     Active Substance: METHYLPREDNISOLONE
  46. POTASSIUM CHLORIDE. [Concomitant]
     Active Substance: POTASSIUM CHLORIDE
  47. PANCURONIUM BROMIDE. [Concomitant]
     Active Substance: PANCURONIUM BROMIDE
  48. EZETIMIBE. [Concomitant]
     Active Substance: EZETIMIBE
  49. LIDOCAINE HYDROCHLORIDE. [Concomitant]
     Active Substance: LIDOCAINE HYDROCHLORIDE
  50. VERSED [Concomitant]
     Active Substance: MIDAZOLAM HYDROCHLORIDE
  51. NEXIUM [Suspect]
     Active Substance: ESOMEPRAZOLE MAGNESIUM
     Indication: GASTRINOMA
     Dosage: GENERIC
     Route: 065
     Dates: start: 2017, end: 2019
  52. NEXIUM I.V. [Suspect]
     Active Substance: ESOMEPRAZOLE SODIUM
     Route: 042
  53. PRILOSEC [Suspect]
     Active Substance: OMEPRAZOLE MAGNESIUM
     Indication: GASTRINOMA
     Route: 048
     Dates: start: 1989, end: 2005
  54. ONDANSETRON [Concomitant]
     Active Substance: ONDANSETRON
  55. METOPROLOL SUCCINATE. [Concomitant]
     Active Substance: METOPROLOL SUCCINATE
  56. ALLOPURINOL. [Concomitant]
     Active Substance: ALLOPURINOL
  57. HYDRALAZINE HYDROCHLORIDE. [Concomitant]
     Active Substance: HYDRALAZINE HYDROCHLORIDE
  58. EPTIFIBATIDE. [Concomitant]
     Active Substance: EPTIFIBATIDE
  59. VITAMIN D [Concomitant]
     Active Substance: VITAMIN D NOS
  60. PREVACID [Suspect]
     Active Substance: LANSOPRAZOLE
     Indication: GASTRINOMA
     Route: 065
     Dates: start: 2005, end: 2010
  61. LOSARTAN. [Concomitant]
     Active Substance: LOSARTAN
     Indication: HYPERTENSION
     Dates: start: 2004
  62. SIMVASTATIN. [Concomitant]
     Active Substance: SIMVASTATIN

REACTIONS (3)
  - Renal failure [Unknown]
  - Acute kidney injury [Unknown]
  - Chronic kidney disease [Not Recovered/Not Resolved]
